FAERS Safety Report 4420952-3 (Version None)
Quarter: 2004Q3

REPORT INFORMATION
  Report Type: 
  Country: None (occurrence: None)
  Receive Date: 20040809
  Receipt Date: 20030116
  Transmission Date: 20050211
  Serious: Yes (Hospitalization)
  Sender: FDA-Public Use
  Company Number: US-MERCK-0301USA01540

PATIENT
  Age: 57 Year
  Sex: Female
  Weight: 79 kg

DRUGS (6)
  1. BENADRYL [Concomitant]
     Route: 065
  2. MOTRIN [Concomitant]
     Indication: ARTHRITIS
     Route: 065
  3. PAXIL [Concomitant]
     Indication: DEPRESSION
     Route: 065
     Dates: start: 20010301
  4. PAXIL [Concomitant]
     Route: 065
     Dates: end: 20010201
  5. VIOXX [Suspect]
     Indication: PAIN
     Route: 048
     Dates: start: 20000601, end: 20001201
  6. VIOXX [Suspect]
     Indication: INTERVERTEBRAL DISC DEGENERATION
     Route: 048
     Dates: start: 20000601, end: 20001201

REACTIONS (22)
  - BACK PAIN [None]
  - BRONCHITIS [None]
  - CEREBROVASCULAR ACCIDENT [None]
  - CONSTIPATION [None]
  - DYSPEPSIA [None]
  - DYSPNOEA [None]
  - ECZEMA INFECTED [None]
  - EMOTIONAL DISTRESS [None]
  - FRACTURED COCCYX [None]
  - GASTRITIS [None]
  - HEADACHE [None]
  - HEMIPARESIS [None]
  - NASOPHARYNGITIS [None]
  - OEDEMA PERIPHERAL [None]
  - PAIN IN EXTREMITY [None]
  - PHARYNGOLARYNGEAL PAIN [None]
  - PNEUMONIA [None]
  - SINUS CONGESTION [None]
  - SINUSITIS [None]
  - SYNCOPE [None]
  - THYROID PAIN [None]
  - VISION BLURRED [None]
